FAERS Safety Report 5299084-0 (Version None)
Quarter: 2007Q2

REPORT INFORMATION
  Report Type: 
  Country: None (occurrence: None)
  Receive Date: 20070417
  Receipt Date: 20070412
  Transmission Date: 20071010
  Serious: Yes (Other)
  Sender: FDA-Public Use
  Company Number: US-GLAXOSMITHKLINE-A0646994A

PATIENT
  Age: 47 Year
  Sex: Male

DRUGS (6)
  1. LAMICTAL [Suspect]
     Indication: BIPOLAR DISORDER
     Dosage: 200MG TWICE PER DAY
     Route: 048
     Dates: start: 20070101
  2. LISINOPRIL [Concomitant]
  3. DIURETIC [Concomitant]
  4. HYDROCHLOROTHIAZIDE [Concomitant]
  5. VALIUM [Concomitant]
  6. ASPIRIN [Concomitant]

REACTIONS (5)
  - ARTHRALGIA [None]
  - CONFUSIONAL STATE [None]
  - DYSLEXIA [None]
  - JOINT LOCK [None]
  - RASH [None]
